FAERS Safety Report 5137854-X (Version None)
Quarter: 2006Q4

REPORT INFORMATION
  Report Type: 
  Country: None (occurrence: None)
  Receive Date: 20061030
  Receipt Date: 20060126
  Transmission Date: 20070319
  Serious: No
  Sender: FDA-Public Use
  Company Number: US-GLAXOSMITHKLINE-A0591083A

PATIENT
  Age: 64 Year
  Sex: Male

DRUGS (5)
  1. ADVAIR HFA [Suspect]
     Indication: ASTHMA
     Dosage: 1PUFF TWICE PER DAY
     Route: 055
  2. NASAL SPRAY [Concomitant]
  3. UNKNOWN MEDICATION [Concomitant]
  4. ZOCOR [Concomitant]
  5. VIAGRA [Concomitant]

REACTIONS (1)
  - BLOOD GLUCOSE INCREASED [None]
